FAERS Safety Report 21490254 (Version 2)
Quarter: 2025Q2

REPORT INFORMATION
  Report Type: Spontaneous
  Country: FR (occurrence: FR)
  Receive Date: 20221021
  Receipt Date: 20250605
  Transmission Date: 20250716
  Serious: Yes (Other)
  Sender: AUROBINDO
  Company Number: FR-PFIZER INC-PV202200078168

PATIENT
  Sex: Female

DRUGS (4)
  1. VALACYCLOVIR HYDROCHLORIDE [Suspect]
     Active Substance: VALACYCLOVIR HYDROCHLORIDE
     Indication: Prophylaxis
     Route: 065
  2. SIROLIMUS [Suspect]
     Active Substance: SIROLIMUS
     Indication: Immunosuppressant drug therapy
     Route: 065
  3. ACYCLOVIR [Concomitant]
     Active Substance: ACYCLOVIR
     Indication: Product used for unknown indication
     Route: 065
  4. FOSCARNET [Concomitant]
     Active Substance: FOSCARNET
     Indication: Product used for unknown indication
     Dosage: 40 MILLIGRAM/KILOGRAM, 3 TIMES A DAY
     Route: 065

REACTIONS (2)
  - Drug resistance [Recovered/Resolved]
  - Drug ineffective [Unknown]
